FAERS Safety Report 8554150-9 (Version None)
Quarter: 2012Q3

REPORT INFORMATION
  Report Type: 
  Country: None (occurrence: None)
  Receive Date: 20120731
  Receipt Date: 20120727
  Transmission Date: 20120928
  Serious: Yes (Other)
  Sender: FDA-Public Use
  Company Number: PHHY2011BR68238

PATIENT
  Sex: Female

DRUGS (1)
  1. TRILEPTAL [Suspect]
     Indication: DEPRESSION
     Dosage: 300 MG, UNK
     Route: 048

REACTIONS (9)
  - AGITATION [None]
  - NEPHROLITHIASIS [None]
  - DIZZINESS [None]
  - NAUSEA [None]
  - NERVOUSNESS [None]
  - URINARY RETENTION [None]
  - MATERNAL EXPOSURE DURING PREGNANCY [None]
  - TREMOR [None]
  - SOMNOLENCE [None]
